FAERS Safety Report 9129038 (Version 1)
Quarter: 2013Q1

REPORT INFORMATION
  Report Type: Spontaneous
  Country: US (occurrence: US)
  Receive Date: 20130125
  Receipt Date: 20130125
  Transmission Date: 20140127
  Serious: No
  Sender: FDA-Public Use
  Company Number: US-BRACCO-008839

PATIENT
  Age: 61 Year
  Sex: Female
  Weight: 65 kg

DRUGS (3)
  1. MULTIHANCE [Suspect]
     Indication: CEREBROVASCULAR ACCIDENT
     Route: 042
     Dates: start: 20121112, end: 20121112
  2. MULTIHANCE [Suspect]
     Indication: NUCLEAR MAGNETIC RESONANCE IMAGING BRAIN
     Route: 042
     Dates: start: 20121112, end: 20121112
  3. PREDNISONE [Concomitant]

REACTIONS (2)
  - Throat irritation [Recovered/Resolved]
  - Eyelid oedema [Recovered/Resolved]
